FAERS Safety Report 5171116-X (Version None)
Quarter: 2006Q4

REPORT INFORMATION
  Report Type: 
  Country: None (occurrence: None)
  Receive Date: 20061206
  Receipt Date: 20061206
  Transmission Date: 20070319
  Serious: Yes (Hospitalization, Disabling)
  Sender: FDA-Public Use
  Company Number: None

PATIENT
  Sex: Male
  Weight: 96.1626 kg

DRUGS (21)
  1. SIMVASTATIN [Suspect]
     Indication: HYPERLIPIDAEMIA
     Dosage: 80MG  HS  PO
     Route: 048
     Dates: start: 20030207, end: 20061025
  2. GEMFIBROZIL [Suspect]
     Indication: HYPERTRIGLYCERIDAEMIA
     Dosage: 600MG  BID  PO
     Route: 048
     Dates: start: 20040514, end: 20061025
  3. ALBUTEROL / IPRATROP [Concomitant]
  4. AMLODIPINE BESYLATE AND BENAZEPRIL HCL [Concomitant]
  5. AMOXICILLIN [Concomitant]
  6. ASPIRIN [Concomitant]
  7. BUPROPION HCL [Concomitant]
  8. SA CYANOCOBAL / FA / PYRIDX [Concomitant]
  9. FORMOTEROL FUMARATE [Concomitant]
  10. FUROSEMIDE [Concomitant]
  11. LEVALBUTEROL HCL [Concomitant]
  12. ALBUTEROL [Concomitant]
  13. METOPROLOL TARTRATE [Concomitant]
  14. MOMETASONE FUROATE [Concomitant]
  15. 30 MORPHINE -ORAMORPH SR- [Concomitant]
  16. NITROGLYCERIN [Concomitant]
  17. OMEPRAZOLE [Concomitant]
  18. OXYCODONE HCL [Concomitant]
  19. PHENTOLAMINE/PAPAVRN/PROSTAGLDN E1 [Concomitant]
  20. PROMETHAZINE [Concomitant]
  21. TERAZOSIN HCL [Concomitant]

REACTIONS (4)
  - ANTINUCLEAR ANTIBODY POSITIVE [None]
  - DNA ANTIBODY POSITIVE [None]
  - KIDNEY INFECTION [None]
  - RHABDOMYOLYSIS [None]
